FAERS Safety Report 11660762 (Version 1)
Quarter: 2015Q4

REPORT INFORMATION
  Report Type: Spontaneous
  Country: US (occurrence: US)
  Receive Date: 20151026
  Receipt Date: 20151026
  Transmission Date: 20160304
  Serious: Yes (Hospitalization)
  Sender: FDA-Public Use
  Company Number: US-ACTELION-A-US2014-107846

PATIENT
  Age: 12 Year
  Sex: Male

DRUGS (1)
  1. ZAVESCA [Suspect]
     Active Substance: MIGLUSTAT
     Indication: LIPIDOSIS
     Dosage: 200 MG, BID
     Route: 048
     Dates: start: 20140811

REACTIONS (1)
  - Diarrhoea [Unknown]
